FAERS Safety Report 22284159 (Version 1)
Quarter: 2023Q2

REPORT INFORMATION
  Report Type: Spontaneous
  Country: US (occurrence: US)
  Receive Date: 20230504
  Receipt Date: 20230504
  Transmission Date: 20230722
  Serious: No
  Sender: FDA-Public Use
  Company Number: US-PFIZER INC-PV202300076338

PATIENT
  Age: 43 Year
  Sex: Male

DRUGS (1)
  1. XELJANZ XR [Suspect]
     Active Substance: TOFACITINIB CITRATE
     Indication: Colitis ulcerative
     Dosage: 11 MG, DAILY
     Dates: start: 202009

REACTIONS (5)
  - Dyspepsia [Unknown]
  - Dyspepsia [Unknown]
  - Dysphagia [Unknown]
  - Frequent bowel movements [Unknown]
  - Stress [Unknown]

NARRATIVE: CASE EVENT DATE: 20211101
